FAERS Safety Report 9329035 (Version 1)
Quarter: 2013Q2

REPORT INFORMATION
  Report Type: Spontaneous
  Country: US (occurrence: US)
  Receive Date: 20130604
  Receipt Date: 20130604
  Transmission Date: 20140414
  Serious: Yes (Hospitalization, Disabling)
  Sender: FDA-Public Use
  Company Number: US-GLAXOSMITHKLINE-A1019935A

PATIENT
  Age: 69 Year
  Sex: Male

DRUGS (8)
  1. VOTRIENT [Suspect]
     Indication: RENAL CANCER
     Dosage: 800MG PER DAY
     Route: 065
     Dates: start: 20130128, end: 20130402
  2. ECOTRIN [Concomitant]
  3. ALLOPURINOL [Concomitant]
  4. ATORVASTATIN [Concomitant]
  5. COLCRYS [Concomitant]
  6. AMLODIPINE [Concomitant]
  7. VALSARTAN/ HYDROCHLOROTHIAZIDE [Concomitant]
  8. METOPROLOL [Concomitant]

REACTIONS (8)
  - Renal failure [Recovering/Resolving]
  - Dehydration [Recovering/Resolving]
  - Azotaemia [Recovering/Resolving]
  - Nausea [Recovering/Resolving]
  - Dysgeusia [Not Recovered/Not Resolved]
  - Diarrhoea [Recovering/Resolving]
  - Bradycardia [Recovering/Resolving]
  - Liver function test abnormal [Recovering/Resolving]
